FAERS Safety Report 25505875 (Version 1)
Quarter: 2025Q3

REPORT INFORMATION
  Report Type: Spontaneous
  Country: CH (occurrence: CH)
  Receive Date: 20250702
  Receipt Date: 20250702
  Transmission Date: 20251021
  Serious: Yes (Other)
  Sender: AMGEN
  Company Number: CH-AMGEN-CHESP2025125738

PATIENT

DRUGS (1)
  1. PROLIA [Suspect]
     Active Substance: DENOSUMAB
     Indication: Product used for unknown indication
     Route: 065

REACTIONS (3)
  - Spinal fracture [Unknown]
  - Bone density decreased [Unknown]
  - Off label use [Unknown]
